FAERS Safety Report 23171506 (Version 3)
Quarter: 2024Q2

REPORT INFORMATION
  Report Type: Spontaneous
  Country: US (occurrence: US)
  Receive Date: 20231110
  Receipt Date: 20240413
  Transmission Date: 20240716
  Serious: Yes (Hospitalization, Other)
  Sender: FDA-Public Use
  Company Number: US-AstraZeneca-CH-00501089A

PATIENT
  Age: 79 Year
  Sex: Male

DRUGS (2)
  1. ULTOMIRIS [Suspect]
     Active Substance: RAVULIZUMAB-CWVZ
     Indication: Product used for unknown indication
     Dosage: UNK
     Route: 065
  2. PROSTIGMIN [Concomitant]
     Active Substance: NEOSTIGMINE BROMIDE
     Indication: Product used for unknown indication
     Dosage: UNK
     Route: 065

REACTIONS (6)
  - Pneumonia [Unknown]
  - Spinal fracture [Unknown]
  - Lower limb fracture [Unknown]
  - Fall [Unknown]
  - Joint injury [Unknown]
  - Balance disorder [Unknown]

NARRATIVE: CASE EVENT DATE: 20231012
